FAERS Safety Report 18716784 (Version 1)
Quarter: 2021Q1

REPORT INFORMATION
  Report Type: Spontaneous
  Country: US (occurrence: US)
  Receive Date: 20210107
  Receipt Date: 20210107
  Transmission Date: 20210419
  Serious: No
  Sender: FDA-Public Use
  Company Number: None

PATIENT
  Age: 96 Year
  Sex: Male

DRUGS (1)
  1. RIFAMPIN (RIFAMPIN 300MG CAP) [Suspect]
     Active Substance: RIFAMPIN
     Indication: ALPHA HAEMOLYTIC STREPTOCOCCAL INFECTION
     Route: 048
     Dates: start: 20191018, end: 20191104

REACTIONS (3)
  - Nausea [None]
  - Hepatic enzyme increased [None]
  - Lethargy [None]

NARRATIVE: CASE EVENT DATE: 20191104
